FAERS Safety Report 20585867 (Version 1)
Quarter: 2022Q1

REPORT INFORMATION
  Report Type: Spontaneous
  Country: US (occurrence: US)
  Receive Date: 20220312
  Receipt Date: 20220312
  Transmission Date: 20220424
  Serious: Yes (Death, Hospitalization, Other)
  Sender: FDA-Public Use
  Company Number: US-ALVOGEN-2022-ALVOGEN-118543

PATIENT
  Age: 54 Year
  Sex: Female

DRUGS (6)
  1. FLUOXETINE [Suspect]
     Active Substance: FLUOXETINE HYDROCHLORIDE
     Indication: Suicide attempt
  2. PREGABALIN [Suspect]
     Active Substance: PREGABALIN
     Indication: Suicide attempt
  3. QUETIAPINE [Suspect]
     Active Substance: QUETIAPINE
     Indication: Suicide attempt
  4. IBUPROFEN [Suspect]
     Active Substance: IBUPROFEN
     Indication: Suicide attempt
  5. ALCOHOL [Suspect]
     Active Substance: ALCOHOL
     Indication: Suicide attempt
  6. CARISOPRODOL [Suspect]
     Active Substance: CARISOPRODOL
     Indication: Suicide attempt

REACTIONS (1)
  - Completed suicide [Fatal]
